FAERS Safety Report 7879337-X (Version None)
Quarter: 2011Q4

REPORT INFORMATION
  Report Type: 
  Country: None (occurrence: None)
  Receive Date: 20111101
  Receipt Date: 20111020
  Transmission Date: 20120403
  Serious: Yes (Death)
  Sender: FDA-Public Use
  Company Number: ES-ELI_LILLY_AND_COMPANY-ES201110005193

PATIENT
  Sex: Female
  Weight: 62 kg

DRUGS (3)
  1. OXYGEN [Concomitant]
     Route: 055
  2. MORPHINE [Concomitant]
  3. FORTEO [Suspect]
     Indication: OSTEOPOROSIS
     Dosage: 20 UG, QD
     Route: 058
     Dates: start: 20100427, end: 20111014

REACTIONS (1)
  - DEATH [None]
